FAERS Safety Report 18665608 (Version 1)
Quarter: 2020Q4

REPORT INFORMATION
  Report Type: Spontaneous
  Country: US (occurrence: US)
  Receive Date: 20201226
  Receipt Date: 20201226
  Transmission Date: 20210114
  Serious: No
  Sender: FDA-Public Use
  Company Number: US-009507513-2012USA009867

PATIENT
  Sex: Female

DRUGS (4)
  1. STERILE DILUENT (WATER) [Suspect]
     Active Substance: WATER
     Dosage: UNK
     Dates: start: 202009
  2. GANIRELIX ACETATE INJECTION [Suspect]
     Active Substance: GANIRELIX ACETATE
     Indication: ASSISTED FERTILISATION
     Dosage: 250 MICROGRAM, DAILY (QD); STRENGTH: 250 MICROGRAM/ 0.5 MILLILTER
     Route: 058
     Dates: start: 202009
  3. PREGNYL [Suspect]
     Active Substance: CHORIOGONADOTROPIN ALFA
     Indication: ASSISTED FERTILISATION
     Dosage: FIRST VIAL: MIX AND INJECT 5-20 UNITS AS DIRECTED; 10 MILLILITER PER VIAL
     Route: 058
     Dates: start: 202009
  4. PREGNYL [Suspect]
     Active Substance: CHORIOGONADOTROPIN ALFA
     Dosage: SECOND VIAL: MIX AND INJECT 10,000 UNITS SUBCUTANEOUSLY WHEN DIRECTED
     Route: 058
     Dates: start: 202009

REACTIONS (1)
  - Maternal exposure before pregnancy [Unknown]
